FAERS Safety Report 6347317-1 (Version None)
Quarter: 2009Q3

REPORT INFORMATION
  Report Type: 
  Country: None (occurrence: None)
  Receive Date: 20090908
  Receipt Date: 20090908
  Transmission Date: 20100115
  Serious: Yes (Life-Threatening)
  Sender: FDA-Public Use
  Company Number: None

PATIENT
  Age: 60 Year
  Sex: Male
  Weight: 86.1834 kg

DRUGS (1)
  1. DOXYCYCLINE [Suspect]
     Indication: EXPOSURE TO TOXIC AGENT
     Dosage: 100 MG 2 X DAILY PO
     Route: 048
     Dates: start: 20090727, end: 20090802

REACTIONS (9)
  - AGGRESSION [None]
  - DISORIENTATION [None]
  - FEELING OF DESPAIR [None]
  - HEADACHE [None]
  - IMPAIRED WORK ABILITY [None]
  - INSOMNIA [None]
  - PSYCHOTIC DISORDER [None]
  - SOMNOLENCE [None]
  - SUICIDAL IDEATION [None]
